FAERS Safety Report 12941374 (Version 2)
Quarter: 2017Q3

REPORT INFORMATION
  Report Type: Spontaneous
  Country: US (occurrence: US)
  Receive Date: 20161114
  Receipt Date: 20170824
  Transmission Date: 20171127
  Serious: No
  Sender: FDA-Public Use
  Company Number: GXBR2016US003194

PATIENT
  Sex: Male

DRUGS (2)
  1. XTANDI [Suspect]
     Active Substance: ENZALUTAMIDE
     Indication: PROSTATE CANCER
     Dosage: 160 MG, QD
     Route: 048
     Dates: start: 20160922
  2. AMITRIPTYLINE HCL TABLETS USP [Suspect]
     Active Substance: AMITRIPTYLINE HYDROCHLORIDE
     Indication: INSOMNIA
     Dosage: 25 MG, QHS
     Route: 048

REACTIONS (9)
  - Decreased appetite [Unknown]
  - Fatigue [Unknown]
  - Nightmare [Recovered/Resolved]
  - Vertigo [Unknown]
  - Weight decreased [Unknown]
  - Balance disorder [Unknown]
  - Dizziness [Unknown]
  - Nausea [Unknown]
  - Abnormal dreams [Recovered/Resolved]
